FAERS Safety Report 5018854-7 (Version None)
Quarter: 2006Q2

REPORT INFORMATION
  Report Type: 
  Country: None (occurrence: None)
  Receive Date: 20060531
  Receipt Date: 20060522
  Transmission Date: 20061013
  Serious: Yes (Hospitalization)
  Sender: FDA-Public Use
  Company Number: 225037

PATIENT
  Age: 67 Year
  Sex: Male
  Weight: 70.6 kg

DRUGS (4)
  1. ERLOTINIB [Suspect]
     Indication: NON-SMALL CELL LUNG CANCER
     Dosage: 150 MG, QD, ORAL
     Route: 048
     Dates: start: 20050928
  2. AVASTIN [Suspect]
     Indication: NON-SMALL CELL LUNG CANCER
     Dosage: 15 MG/KG. Q3W, INTRAVENOUS
     Route: 042
     Dates: start: 20050928
  3. CARBOPLATIN [Concomitant]
  4. TAXOL (PACITAXEL) [Concomitant]

REACTIONS (2)
  - PNEUMONIA ASPIRATION [None]
  - PNEUMONITIS [None]
